FAERS Safety Report 20659869 (Version 4)
Quarter: 2022Q2

REPORT INFORMATION
  Report Type: Spontaneous
  Country: US (occurrence: None)
  Receive Date: 20220331
  Receipt Date: 20220623
  Transmission Date: 20220721
  Serious: Yes (Other)
  Sender: FDA-Public Use
  Company Number: US-ROCHE-3061621

PATIENT
  Age: 62 Year
  Sex: Female

DRUGS (3)
  1. HERCEPTIN [Suspect]
     Active Substance: TRASTUZUMAB
     Indication: Breast cancer metastatic
     Route: 065
     Dates: start: 202008
  2. XELODA [Suspect]
     Active Substance: CAPECITABINE
     Indication: Breast cancer metastatic
     Route: 048
     Dates: start: 202008
  3. TUKYSA [Suspect]
     Active Substance: TUCATINIB
     Indication: Breast cancer metastatic
     Route: 065

REACTIONS (17)
  - Ill-defined disorder [Unknown]
  - Metastases to bone [Unknown]
  - COVID-19 [Unknown]
  - Back pain [Unknown]
  - Muscle spasms [Unknown]
  - Abdominal discomfort [Unknown]
  - Decreased appetite [Unknown]
  - Cancer pain [Unknown]
  - Neuropathy peripheral [Unknown]
  - Central nervous system lesion [Unknown]
  - Brain oedema [Unknown]
  - Hyponatraemia [Unknown]
  - Affect lability [Unknown]
  - Psychotic disorder [Unknown]
  - Bronchitis [Unknown]
  - Neoplasm progression [Unknown]
  - Blood creatinine increased [Unknown]
